FAERS Safety Report 15900099 (Version 5)
Quarter: 2020Q1

REPORT INFORMATION
  Report Type: Spontaneous
  Country: US (occurrence: US)
  Receive Date: 20190201
  Receipt Date: 20200317
  Transmission Date: 20200409
  Serious: Yes (Hospitalization, Other)
  Sender: FDA-Public Use
  Company Number: US-PFIZER INC-2019047089

PATIENT
  Age: 54 Year
  Sex: Female
  Weight: 69.85 kg

DRUGS (32)
  1. ALBUTEROL SULFATE. [Concomitant]
     Active Substance: ALBUTEROL SULFATE
     Dosage: 2.5 MG, AS NEEDED (TAKE 2.5 MG BY NEBULIZATION EVERY 6 (SIX) HOURS IF NEEDED.)
  2. ATARAX [Concomitant]
     Active Substance: HYDROXYZINE HYDROCHLORIDE
     Indication: PRURITUS
     Dosage: 10 MG, AS NEEDED (TAKE 1 TABLET (10 MG TOTAL) BY MOUTH EVERY 6 (SIX) HOURS IF NEEDED )
     Route: 048
  3. NARCAN [Concomitant]
     Active Substance: NALOXONE HYDROCHLORIDE
     Dosage: UNK UNK, AS NEEDED (4 MG/ACTUATION)
  4. OSCAL [Concomitant]
     Active Substance: CALCIUM CARBONATE
     Dosage: 300 MG, 1X/DAY
     Route: 048
  5. PREMARIN [Concomitant]
     Active Substance: ESTROGENS, CONJUGATED
     Dosage: 1 G, 2X/WEEK (INSERT 1 G INTO THE VAGINA 2 (TWO) TIMES PER WEEK)
  6. PROVENTIL HFA [Concomitant]
     Active Substance: ALBUTEROL SULFATE
     Indication: WHEEZING
     Dosage: 2 DF, AS NEEDED (INHALE 2 PUFFS EVERY 6 (SIX) HOURS/ 90 MCG/ ACTUATION)
  7. LYRICA [Suspect]
     Active Substance: PREGABALIN
     Indication: NEURALGIA
     Dosage: 150 MG, 3X/DAY, (TAKE 1 CAPSULE (150 MG TOTAL) BY MOUTH 3 (THREE) TIMES PER DAY.)
     Route: 048
  8. LYRICA [Suspect]
     Active Substance: PREGABALIN
     Indication: FIBROMYALGIA
  9. ANTIVERT [Concomitant]
     Active Substance: MECLIZINE HYDROCHLORIDE
     Indication: DIZZINESS
     Dosage: 25 MG, AS NEEDED (TAKE 25 MG BY MOUTH 3 (THREE) TIMES PER DAY IF NEEDED )
     Route: 048
  10. FLONASE [Concomitant]
     Active Substance: FLUTICASONE PROPIONATE
     Dosage: 2 DF, 1X/DAY (USE 2 SPRAYS IN EACH NOSTRIL ONCE DAILY)
     Route: 045
  11. LEXAPRO [Concomitant]
     Active Substance: ESCITALOPRAM OXALATE
     Indication: AFFECTIVE DISORDER
     Dosage: 5 MG, 1X/DAY
     Route: 048
  12. LODINE [Concomitant]
     Active Substance: ETODOLAC
     Dosage: 400 MG, 2X/DAY
     Route: 048
  13. VENTOLIN HFA [Concomitant]
     Active Substance: ALBUTEROL SULFATE
     Indication: WHEEZING
     Dosage: UNK UNK, AS NEEDED (INHALE 2 PUFFS EVERY 6 (SIX) HOURS )
  14. BENTYL [Concomitant]
     Active Substance: DICYCLOMINE HYDROCHLORIDE
     Indication: ABDOMINAL PAIN
     Dosage: 20 MG, AS NEEDED (TAKE 1 TABLET BY MOUTH THREE TIMES DAILY AS NEEDED )
     Route: 048
  15. MIRALAX [Concomitant]
     Active Substance: POLYETHYLENE GLYCOL 3350
     Dosage: 17 G, 1X/DAY
  16. SALAGEN [Concomitant]
     Active Substance: PILOCARPINE HYDROCHLORIDE
     Dosage: 5 MG, 4X/DAY
     Route: 048
  17. EPIPEN [Concomitant]
     Active Substance: EPINEPHRINE
     Indication: ANAPHYLACTIC REACTION
     Dosage: 0.3 ML, AS NEEDED (0.3 MG/0.3 ML)
     Route: 030
  18. LORCET [Concomitant]
     Active Substance: ACETAMINOPHEN\HYDROCODONE BITARTRATE
     Indication: PAIN
     Dosage: 1 DF, AS NEEDED, (10-325 MG/  1 TABLET BY MOUTH EVERY 6 HOURS IF NEEDED)
     Route: 048
  19. OMEGA 3 FISH OIL [Concomitant]
     Active Substance: FISH OIL\OMEGA-3 FATTY ACIDS
     Dosage: 1 DF, 1X/DAY (100-160-1,000 MG)
     Route: 048
  20. PROTONIX [Concomitant]
     Active Substance: PANTOPRAZOLE SODIUM
     Dosage: 40 MG, 1X/DAY
     Route: 048
  21. VITAMIN D [Concomitant]
     Active Substance: VITAMIN D NOS
     Dosage: 50000 IU, WEEKLY (TAKE 50,000 UNITS BY MOUTH 1 (ONE) TIME PER WEEK)
     Route: 048
  22. ASTELIN [Concomitant]
     Active Substance: AZELASTINE HYDROCHLORIDE
     Dosage: 137 UG, 2X/DAY (ADMINISTER 1 SPRAY INTO EACH NOSTRIL 2 (TWO) TIMES PER DAY)
  23. SYNTHROID [Concomitant]
     Active Substance: LEVOTHYROXINE SODIUM
     Dosage: 75 UG, 1X/DAY
     Route: 048
  24. VITAMIN B12 + FOLIC ACID [Concomitant]
     Active Substance: CYANOCOBALAMIN\FOLIC ACID
     Dosage: 1 DF, 1X/DAY (0.5-1 MG)
     Route: 048
  25. LYRICA [Suspect]
     Active Substance: PREGABALIN
     Indication: SEIZURE
  26. FLEXERIL [Concomitant]
     Active Substance: CYCLOBENZAPRINE HYDROCHLORIDE
     Dosage: 10 MG, AS NEEDED (TAKE 10 MG BY MOUTH 3 (THREE) TIMES PER DAY IF NEEDED)
     Route: 048
  27. PILOCARPINE. [Concomitant]
     Active Substance: PILOCARPINE
     Indication: DRY MOUTH
     Dosage: 5 MG, UNK
  28. LYRICA [Suspect]
     Active Substance: PREGABALIN
     Indication: NEUROPATHY PERIPHERAL
  29. ARNUITY ELLIPTA [Concomitant]
     Active Substance: FLUTICASONE FUROATE
     Dosage: 200 UG, 1X/DAY (INHALE 1 PUFF 1 TIME EACH DAY)
  30. BACTROBAN [Concomitant]
     Active Substance: MUPIROCIN\MUPIROCIN CALCIUM
     Dosage: UNK UNK, 2X/DAY (APPLY INSIDE BOTH NOSTRILS TWICE DAILY FOR 5 DAYS BEFORE YOUR PROCEDURE)
     Route: 045
  31. KLONOPIN [Concomitant]
     Active Substance: CLONAZEPAM
     Dosage: 0.5 MG, AS NEEDED (TAKE 1 TABLET (0.5 MG TOTAL) BY MOUTH EVERY 6 (SIX) HOURS IF NEEDED)
     Route: 048
  32. LEVOTHROID [Concomitant]
     Active Substance: LEVOTHYROXINE SODIUM
     Dosage: 75 UG, 1X/DAY
     Route: 048

REACTIONS (8)
  - Panic attack [Unknown]
  - Malaise [Unknown]
  - Multiple sclerosis [Unknown]
  - Bradycardia [Unknown]
  - Tremor [Unknown]
  - Withdrawal syndrome [Unknown]
  - Gait disturbance [Unknown]
  - Intraneural cyst [Unknown]
